FAERS Safety Report 4376570-9 (Version None)
Quarter: 2004Q2

REPORT INFORMATION
  Report Type: 
  Country: None (occurrence: None)
  Receive Date: 20040614
  Receipt Date: 20040531
  Transmission Date: 20050107
  Serious: Yes (Hospitalization)
  Sender: FDA-Public Use
  Company Number: JP-JNJFOC-20040101541

PATIENT
  Sex: Female
  Weight: 70 kg

DRUGS (13)
  1. REMICADE [Suspect]
     Route: 041
  2. REMICADE [Suspect]
     Indication: RHEUMATOID ARTHRITIS
     Route: 041
  3. PREDONINE [Concomitant]
     Indication: RHEUMATOID ARTHRITIS
     Route: 049
  4. RHEUMATREX [Concomitant]
     Route: 049
  5. RHEUMATREX [Concomitant]
     Indication: RHEUMATOID ARTHRITIS
     Route: 049
  6. AZULFIDINE [Concomitant]
     Route: 049
  7. GLAKAY [Concomitant]
     Route: 049
  8. TAKEPRON [Concomitant]
     Route: 049
  9. LOXONIN [Concomitant]
     Indication: RHEUMATOID ARTHRITIS
     Route: 049
  10. SELBEX [Concomitant]
     Route: 049
  11. VASOLAN [Concomitant]
     Route: 049
  12. CYTOTEC [Concomitant]
     Route: 049
  13. MOHRUS TAPE [Concomitant]

REACTIONS (6)
  - DRUG INEFFECTIVE [None]
  - DRUG INTERACTION [None]
  - FATIGUE [None]
  - PAROTITIS [None]
  - THYROIDITIS SUBACUTE [None]
  - WHITE BLOOD CELL COUNT INCREASED [None]
